FAERS Safety Report 12479134 (Version 1)
Quarter: 2016Q2

REPORT INFORMATION
  Report Type: Spontaneous
  Country: US (occurrence: None)
  Receive Date: 20160617
  Receipt Date: 20160617
  Transmission Date: 20160815
  Serious: No
  Sender: FDA-Public Use
  Company Number: None

PATIENT
  Age: 5 Day
  Sex: Female
  Weight: 100.7 kg

DRUGS (19)
  1. PROLIA [Suspect]
     Active Substance: DENOSUMAB
     Indication: OSTEOPOROSIS
     Dosage: EVERY 6 MONTHS
     Dates: start: 20160429, end: 20160429
  2. VITAMIN D3 [Concomitant]
     Active Substance: CHOLECALCIFEROL
  3. COMBIVENT [Concomitant]
     Active Substance: ALBUTEROL SULFATE\IPRATROPIUM BROMIDE
  4. CENTRUM SILVER [Concomitant]
     Active Substance: MINERALS\VITAMINS
  5. METHOTREXATE [Concomitant]
     Active Substance: METHOTREXATE
  6. VALSARTAN. [Concomitant]
     Active Substance: VALSARTAN
  7. FOLIC ACID. [Concomitant]
     Active Substance: FOLIC ACID
  8. BYSTOLIC [Concomitant]
     Active Substance: NEBIVOLOL HYDROCHLORIDE
  9. FLOVENT [Concomitant]
     Active Substance: FLUTICASONE PROPIONATE
  10. METROGEL [Concomitant]
     Active Substance: METRONIDAZOLE
  11. AMITRIPTYLINE [Concomitant]
     Active Substance: AMITRIPTYLINE
  12. PREDNISONE. [Concomitant]
     Active Substance: PREDNISONE
  13. ULTRACET [Concomitant]
     Active Substance: ACETAMINOPHEN\TRAMADOL HYDROCHLORIDE
  14. REMICADE [Concomitant]
     Active Substance: INFLIXIMAB
  15. FUROSEMIDE. [Concomitant]
     Active Substance: FUROSEMIDE
  16. NEXIUM [Concomitant]
     Active Substance: ESOMEPRAZOLE MAGNESIUM
  17. LEVOTHYROXINE. [Concomitant]
     Active Substance: LEVOTHYROXINE
  18. KRILL OIL [Concomitant]
     Active Substance: DIETARY SUPPLEMENT
  19. ALIGN [Concomitant]
     Active Substance: BIFIDOBACTERIUM LONGUM SUBSP. INFANTIS

REACTIONS (9)
  - Gait disturbance [None]
  - Burning sensation [None]
  - Asthenia [None]
  - Muscular weakness [None]
  - Motor dysfunction [None]
  - Pain [None]
  - Arthralgia [None]
  - Paraesthesia [None]
  - Influenza [None]

NARRATIVE: CASE EVENT DATE: 20160514
